FAERS Safety Report 8539729-2 (Version None)
Quarter: 2012Q3

REPORT INFORMATION
  Report Type: 
  Country: None (occurrence: None)
  Receive Date: 20120726
  Receipt Date: 20111115
  Transmission Date: 20120928
  Serious: No
  Sender: FDA-Public Use
  Company Number: US-ASTRAZENECA-2002UW11177

PATIENT
  Age: 62 Year
  Sex: Female
  Weight: 90.7 kg

DRUGS (11)
  1. SEROQUEL [Suspect]
     Route: 048
     Dates: start: 20010101
  2. ATIVAN [Concomitant]
  3. SEROQUEL [Suspect]
     Indication: DEPRESSION
     Route: 048
     Dates: start: 20020501
  4. SEROQUEL [Suspect]
     Indication: BIPOLAR DISORDER
     Route: 048
     Dates: start: 20020501
  5. VIT B12 SHOTS [Concomitant]
  6. OMEPRAZOLE [Concomitant]
  7. WELLBUTRIN SR [Concomitant]
  8. PREMPRO [Concomitant]
  9. MULTI-VITAMINS [Concomitant]
  10. SEROQUEL [Suspect]
     Route: 048
     Dates: start: 20010101
  11. BUTYPROPION [Concomitant]

REACTIONS (7)
  - HANGOVER [None]
  - HYPOAESTHESIA ORAL [None]
  - SOMNOLENCE [None]
  - HYPOVITAMINOSIS [None]
  - HYPOAESTHESIA [None]
  - WEIGHT INCREASED [None]
  - ALOPECIA [None]
